FAERS Safety Report 18683336 (Version 1)
Quarter: 2020Q4

REPORT INFORMATION
  Report Type: Spontaneous
  Country: US (occurrence: US)
  Receive Date: 20201230
  Receipt Date: 20201230
  Transmission Date: 20210114
  Serious: Yes (Other)
  Sender: FDA-Public Use
  Company Number: None

PATIENT
  Age: 60 Year
  Sex: Female
  Weight: 66 kg

DRUGS (1)
  1. BAMLANIVIMAB. [Suspect]
     Active Substance: BAMLANIVIMAB
     Indication: COVID-19
     Dosage: ?          OTHER FREQUENCY:ONE TIME;?
     Route: 042
     Dates: start: 20201230, end: 20201230

REACTIONS (6)
  - Feeling hot [None]
  - Dyspnoea [None]
  - Flushing [None]
  - Infusion related reaction [None]
  - Erythema [None]
  - Chest discomfort [None]

NARRATIVE: CASE EVENT DATE: 20201230
